FAERS Safety Report 5567981-4 (Version None)
Quarter: 2007Q4

REPORT INFORMATION
  Report Type: 
  Country: None (occurrence: None)
  Receive Date: 20071218
  Receipt Date: 20071218
  Transmission Date: 20080405
  Serious: No
  Sender: FDA-Public Use
  Company Number: None

PATIENT
  Age: 22 Year
  Sex: Male
  Weight: 83.9154 kg

DRUGS (5)
  1. FLUPHENAZINE [Suspect]
     Dosage: 125MG IM
     Route: 030
  2. MULTI-VITAMIN [Concomitant]
  3. BENZTROPINE [Concomitant]
  4. LORAZEPAM [Concomitant]
  5. OLANZAPINE [Concomitant]

REACTIONS (2)
  - BLOOD PRESSURE DECREASED [None]
  - TACHYCARDIA [None]
